FAERS Safety Report 7657748-5 (Version None)
Quarter: 2011Q3

REPORT INFORMATION
  Report Type: 
  Country: None (occurrence: None)
  Receive Date: 20110804
  Receipt Date: 20110619
  Transmission Date: 20111222
  Serious: No
  Sender: FDA-Public Use
  Company Number: US-BAYER-2011-053524

PATIENT
  Age: 60 Year
  Sex: Male
  Weight: 97 kg

DRUGS (2)
  1. NAPROXEN SODIUM [Suspect]
     Indication: ARTHRALGIA
     Dosage: 440 MG, PRN
     Route: 048
     Dates: start: 20101201, end: 20110619
  2. ANTIEPILEPTICS [Concomitant]

REACTIONS (3)
  - ARTHRALGIA [None]
  - GASTROINTESTINAL SOUNDS ABNORMAL [None]
  - CHEST PAIN [None]
